FAERS Safety Report 14343867 (Version 2)
Quarter: 2018Q1

REPORT INFORMATION
  Report Type: Spontaneous
  Country: IT (occurrence: IT)
  Receive Date: 20180102
  Receipt Date: 20180109
  Transmission Date: 20180509
  Serious: Yes (Hospitalization, Other)
  Sender: FDA-Public Use
  Company Number: IT-GEHC-2017CSU004242

PATIENT

DRUGS (1)
  1. OMNISCAN [Suspect]
     Active Substance: GADODIAMIDE
     Indication: PRODUCT USED FOR UNKNOWN INDICATION
     Dosage: UNK UNK, SINGLE
     Route: 042
     Dates: start: 20171125, end: 20171125

REACTIONS (7)
  - Movement disorder [Not Recovered/Not Resolved]
  - Hypotension [Unknown]
  - Pain in extremity [Recovering/Resolving]
  - Asthenia [Not Recovered/Not Resolved]
  - Balance disorder [Not Recovered/Not Resolved]
  - Myalgia [Not Recovered/Not Resolved]
  - Exposure during pregnancy [Unknown]

NARRATIVE: CASE EVENT DATE: 20171129
